FAERS Safety Report 5701923-3 (Version None)
Quarter: 2008Q2

REPORT INFORMATION
  Report Type: 
  Country: None (occurrence: None)
  Receive Date: 20080411
  Receipt Date: 20080402
  Transmission Date: 20081010
  Serious: Yes (Other)
  Sender: FDA-Public Use
  Company Number: ES-ALLERGAN-0803894US

PATIENT
  Age: 92 Year
  Sex: Female

DRUGS (6)
  1. FML [Suspect]
     Indication: DRUG USE FOR UNKNOWN INDICATION
     Dosage: 2 GTT, BID
     Route: 047
     Dates: start: 20071102, end: 20071127
  2. SINTROM [Suspect]
     Indication: DRUG USE FOR UNKNOWN INDICATION
     Route: 048
     Dates: start: 20000101, end: 20071127
  3. NASONEX [Suspect]
     Indication: DRUG USE FOR UNKNOWN INDICATION
     Dosage: 50 UG, TID
     Route: 055
     Dates: start: 20071122, end: 20071127
  4. TOBREX [Concomitant]
     Indication: DRUG USE FOR UNKNOWN INDICATION
     Dosage: 2 GTT, BID
     Route: 047
     Dates: start: 20071122, end: 20071127
  5. COROPRES [Concomitant]
     Indication: DRUG USE FOR UNKNOWN INDICATION
     Dosage: 6.25 MG, QD
     Route: 048
  6. NITRODERM MATRIX [Concomitant]
     Indication: DRUG USE FOR UNKNOWN INDICATION
     Dosage: 36 MG, QD
     Route: 062

REACTIONS (2)
  - COAGULOPATHY [None]
  - DRUG INTERACTION [None]
